FAERS Safety Report 4475579-4 (Version None)
Quarter: 2004Q4

REPORT INFORMATION
  Report Type: 
  Country: None (occurrence: None)
  Receive Date: 20041015
  Receipt Date: 20041006
  Transmission Date: 20050328
  Serious: Yes (Hospitalization)
  Sender: FDA-Public Use
  Company Number: PHRM2004FR03061

PATIENT
  Age: 84 Year
  Sex: Female

DRUGS (2)
  1. TEGRETOL [Suspect]
     Route: 048
     Dates: end: 20040902
  2. RISPERDAL [Concomitant]
     Dosage: 1 MG/DAY
     Route: 048

REACTIONS (5)
  - DEMENTIA [None]
  - EOSINOPHILIA [None]
  - GENERAL PHYSICAL HEALTH DETERIORATION [None]
  - PRURITUS [None]
  - RASH MACULO-PAPULAR [None]
